FAERS Safety Report 24651095 (Version 2)
Quarter: 2024Q4

REPORT INFORMATION
  Report Type: Spontaneous
  Country: US (occurrence: US)
  Receive Date: 20241122
  Receipt Date: 20241212
  Transmission Date: 20250115
  Serious: No
  Sender: PHARMACOSMOS A/S
  Company Number: US-NEBO-672825

PATIENT
  Age: 41 Year
  Sex: Female

DRUGS (1)
  1. MONOFERRIC [Suspect]
     Active Substance: FERRIC DERISOMALTOSE
     Indication: Iron deficiency anaemia
     Dates: start: 20241019, end: 20241019

REACTIONS (2)
  - Skin reaction [Recovered/Resolved]
  - Rash pruritic [Recovered/Resolved]

NARRATIVE: CASE EVENT DATE: 20241022
